FAERS Safety Report 4530091-9 (Version None)
Quarter: 2004Q4

REPORT INFORMATION
  Report Type: 
  Country: None (occurrence: None)
  Receive Date: 20041215
  Receipt Date: 20041215
  Transmission Date: 20050328
  Serious: Yes (Life-Threatening)
  Sender: FDA-Public Use
  Company Number: None

PATIENT
  Age: 55 Year
  Sex: Female
  Weight: 56.6996 kg

DRUGS (5)
  1. CELEBREX [Suspect]
     Indication: OSTEOARTHRITIS
     Dosage: 200MG  Q  DAY ORAL
     Route: 048
     Dates: start: 20030630, end: 20041205
  2. FOSAMAX [Concomitant]
  3. XANAX [Concomitant]
  4. CALCIUM [Concomitant]
  5. OTC FIBER SUPPLEMENTS [Concomitant]

REACTIONS (1)
  - MYOCARDIAL INFARCTION [None]
